FAERS Safety Report 21659025 (Version 6)
Quarter: 2023Q1

REPORT INFORMATION
  Report Type: Spontaneous
  Country: BR (occurrence: BR)
  Receive Date: 20221129
  Receipt Date: 20230321
  Transmission Date: 20230418
  Serious: Yes (Other)
  Sender: FDA-Public Use
  Company Number: BR-002147023-NVSC2022BR261665

PATIENT

DRUGS (5)
  1. RUXOLITINIB [Suspect]
     Active Substance: RUXOLITINIB
     Indication: Myelofibrosis
     Dosage: 40 MG QD (PER DAY FOR ABOUT TWO MONTHS)
     Route: 065
  2. RUXOLITINIB [Suspect]
     Active Substance: RUXOLITINIB
     Dosage: 20 MG, BID
     Route: 065
  3. HYDROXYUREA [Concomitant]
     Active Substance: HYDROXYUREA
     Indication: Myelofibrosis
     Dosage: UNK (IN MAXIMUM DOSE)
     Route: 065
     Dates: start: 2008
  4. ASPIRIN [Concomitant]
     Active Substance: ASPIRIN
     Indication: Product used for unknown indication
     Dosage: UNK
     Route: 065
  5. IRON [Concomitant]
     Active Substance: IRON
     Indication: Product used for unknown indication
     Dosage: UNK
     Route: 065

REACTIONS (19)
  - Nausea [Unknown]
  - Vision blurred [Not Recovered/Not Resolved]
  - Cellulite [Unknown]
  - Discomfort [Unknown]
  - Malignant neoplasm progression [Unknown]
  - Myelofibrosis [Unknown]
  - Wound [Not Recovered/Not Resolved]
  - Quality of life decreased [Unknown]
  - Mouth ulceration [Unknown]
  - Malaise [Unknown]
  - Migraine [Not Recovered/Not Resolved]
  - Inappropriate schedule of product administration [Unknown]
  - Platelet count increased [Not Recovered/Not Resolved]
  - Myelosuppression [Unknown]
  - Skin ulcer [Unknown]
  - Abdominal pain [Unknown]
  - Splenomegaly [Unknown]
  - Full blood count abnormal [Unknown]
  - Blindness [Unknown]

NARRATIVE: CASE EVENT DATE: 20221001
